FAERS Safety Report 6925158-1 (Version None)
Quarter: 2010Q3

REPORT INFORMATION
  Report Type: 
  Country: None (occurrence: None)
  Receive Date: 20100816
  Receipt Date: 20100804
  Transmission Date: 20110219
  Serious: Yes (Other)
  Sender: FDA-Public Use
  Company Number: US-PFIZER INC-2010098484

PATIENT
  Sex: Male

DRUGS (11)
  1. DETROL LA [Suspect]
     Dosage: 4 MG, 1X/DAY
     Dates: start: 20090701
  2. SOLIFENACIN [Suspect]
     Indication: HYPERTONIC BLADDER
     Dosage: 10 MG, 1X/DAY
     Route: 048
     Dates: start: 20100101
  3. SOLIFENACIN [Suspect]
     Indication: PROSTATOMEGALY
  4. FINASTERIDE [Concomitant]
     Dosage: UNK
  5. MICARDIS HCT [Concomitant]
     Dosage: UNK
  6. NITROGLYCERIN [Concomitant]
     Dosage: UNK
  7. METOPROLOL [Concomitant]
     Dosage: UNK
  8. OSTEO BI-FLEX [Concomitant]
     Dosage: UNK
  9. ICAPS [Concomitant]
     Dosage: UNK
  10. NIFEDIPINE [Concomitant]
     Dosage: UNK
  11. ASPIRIN [Concomitant]
     Dosage: UNK

REACTIONS (3)
  - DRUG INEFFECTIVE [None]
  - HYPERTONIC BLADDER [None]
  - NOCTURIA [None]
